FAERS Safety Report 4658720-X (Version None)
Quarter: 2005Q2

REPORT INFORMATION
  Report Type: 
  Country: None (occurrence: None)
  Receive Date: 20050509
  Receipt Date: 20050426
  Transmission Date: 20051028
  Serious: No
  Sender: FDA-Public Use
  Company Number: 2005AP02548

PATIENT
  Age: 18 Year
  Sex: Male
  Weight: 58 kg

DRUGS (4)
  1. DIPRIVAN [Suspect]
     Indication: GENERAL ANAESTHESIA
     Dosage: 3 MG/ML IV
     Route: 042
  2. DIPRIVAN [Suspect]
     Indication: GENERAL ANAESTHESIA
     Dosage: 3.0-4.0 MG/ML
  3. FENTANYL CITRATE [Concomitant]
  4. VECURONIUM BROMIDE [Concomitant]

REACTIONS (3)
  - ANAESTHETIC COMPLICATION [None]
  - BALLISMUS [None]
  - FEELING COLD [None]
